FAERS Safety Report 13274620 (Version 2)
Quarter: 2017Q1

REPORT INFORMATION
  Report Type: Spontaneous
  Country: CA (occurrence: CA)
  Receive Date: 20170227
  Receipt Date: 20170315
  Transmission Date: 20170428
  Serious: Yes (Other)
  Sender: FDA-Public Use
  Company Number: CA-GLAXOSMITHKLINE-CA2017GSK026352

PATIENT
  Sex: Female

DRUGS (1)
  1. VENTOLIN [Suspect]
     Active Substance: ALBUTEROL SULFATE
     Indication: PRODUCT USED FOR UNKNOWN INDICATION
     Dosage: UNK
     Dates: start: 2007

REACTIONS (6)
  - Breast hyperplasia [Unknown]
  - Colitis microscopic [Unknown]
  - Intestinal metaplasia [Unknown]
  - Vocal cord disorder [Unknown]
  - Nasal injury [Unknown]
  - Malaise [Unknown]

NARRATIVE: CASE EVENT DATE: 2013
